FAERS Safety Report 9228889 (Version 7)
Quarter: 2015Q1

REPORT INFORMATION
  Report Type: Spontaneous
  Country: US (occurrence: US)
  Receive Date: 20130412
  Receipt Date: 20150127
  Transmission Date: 20150721
  Serious: No
  Sender: FDA-Public Use
  Company Number: US-009507513-1304USA004473

PATIENT
  Sex: Male
  Weight: 89.34 kg

DRUGS (3)
  1. PROPECIA [Suspect]
     Active Substance: FINASTERIDE
     Indication: ALOPECIA
     Dosage: 1 MG, QD
     Route: 048
     Dates: start: 20040903, end: 20080915
  2. PROPECIA [Suspect]
     Active Substance: FINASTERIDE
     Indication: ANDROGENETIC ALOPECIA
  3. LISINOPRIL. [Concomitant]
     Active Substance: LISINOPRIL
     Indication: HYPERTENSION
     Dosage: 10 MG, QD
     Dates: start: 20031211, end: 20060807

REACTIONS (10)
  - Erectile dysfunction [Unknown]
  - Acute sinusitis [Unknown]
  - Joint injury [Unknown]
  - Bronchitis [Unknown]
  - Sinus disorder [Unknown]
  - Sexual dysfunction [Not Recovered/Not Resolved]
  - Otitis externa [Unknown]
  - Cognitive disorder [Not Recovered/Not Resolved]
  - Bronchial hyperreactivity [Unknown]
  - Libido decreased [Unknown]

NARRATIVE: CASE EVENT DATE: 20040903
